FAERS Safety Report 23813243 (Version 1)
Quarter: 2024Q2

REPORT INFORMATION
  Report Type: Spontaneous
  Country: FR (occurrence: FR)
  Receive Date: 20240503
  Receipt Date: 20240503
  Transmission Date: 20240716
  Serious: Yes (Hospitalization, Other)
  Sender: FDA-Public Use
  Company Number: FR-AFSSAPS-MA2024000409

PATIENT
  Age: 93 Year
  Sex: Male

DRUGS (1)
  1. DIGOXIN [Suspect]
     Active Substance: DIGOXIN
     Indication: Product used for unknown indication
     Dosage: UNK
     Route: 065

REACTIONS (4)
  - Bradycardia [Unknown]
  - Extrasystoles [Unknown]
  - Cardioactive drug level increased [Unknown]
  - Disorientation [Unknown]

NARRATIVE: CASE EVENT DATE: 20231228
